FAERS Safety Report 16119252 (Version 1)
Quarter: 2019Q1

REPORT INFORMATION
  Report Type: Spontaneous
  Country: US (occurrence: US)
  Receive Date: 20190326
  Receipt Date: 20190326
  Transmission Date: 20190418
  Serious: No
  Sender: FDA-Public Use
  Company Number: US-BAUSCH-BL-2019-006614

PATIENT
  Age: 65 Year
  Sex: Female

DRUGS (2)
  1. ARESTIN [Suspect]
     Active Substance: MINOCYCLINE HYDROCHLORIDE
     Indication: ADJUVANT THERAPY
     Route: 048
     Dates: start: 20190212, end: 201902
  2. ARESTIN [Suspect]
     Active Substance: MINOCYCLINE HYDROCHLORIDE
     Dosage: 2 NEW UNIT-DOSES OF ARESTIN
     Route: 048
     Dates: start: 20190220

REACTIONS (3)
  - Product quality issue [Unknown]
  - Gingival bleeding [Unknown]
  - Gingival swelling [Unknown]

NARRATIVE: CASE EVENT DATE: 20190220
